FAERS Safety Report 23578833 (Version 6)
Quarter: 2024Q3

REPORT INFORMATION
  Report Type: Report from Study
  Country: CA (occurrence: CA)
  Receive Date: 20240229
  Receipt Date: 20240814
  Transmission Date: 20241017
  Serious: Yes (Hospitalization, Other)
  Sender: GLAXOSMITHKLINE
  Company Number: CA-GLAXOSMITHKLINE-CA2023136983

PATIENT

DRUGS (8)
  1. MEPOLIZUMAB [Suspect]
     Active Substance: MEPOLIZUMAB
     Indication: Asthma
     Dosage: 100 MG, Q4W
     Route: 058
     Dates: start: 20221019
  2. MEPOLIZUMAB [Suspect]
     Active Substance: MEPOLIZUMAB
     Indication: Asthma
     Dosage: 100 MG, Q4W
     Route: 058
  3. MEPOLIZUMAB [Suspect]
     Active Substance: MEPOLIZUMAB
     Indication: Asthma
     Dosage: 100 MG, Q4W
     Route: 058
  4. MEPOLIZUMAB [Suspect]
     Active Substance: MEPOLIZUMAB
     Indication: Asthma
     Dosage: 100 MG, Q4W
     Route: 058
  5. MEPOLIZUMAB [Suspect]
     Active Substance: MEPOLIZUMAB
     Indication: Asthma
     Dosage: 100 MG, Q4W
     Route: 058
  6. MEPOLIZUMAB [Suspect]
     Active Substance: MEPOLIZUMAB
     Indication: Asthma
     Dosage: 100 MG, Q4W
     Route: 058
  7. COVID-19 VACCINE NOS [Suspect]
     Active Substance: COVID-19 VACCINE
     Indication: COVID-19
     Dosage: UNK, 6TH DOSE
  8. HYDROCORTISONE BUTYRATE [Suspect]
     Active Substance: HYDROCORTISONE BUTYRATE
     Indication: Product used for unknown indication
     Dosage: UNK

REACTIONS (23)
  - Oxygen saturation decreased [Unknown]
  - Asthenia [Not Recovered/Not Resolved]
  - Pneumonitis [Unknown]
  - Cataract [Unknown]
  - Heart rate decreased [Unknown]
  - Wheezing [Unknown]
  - Sputum discoloured [Unknown]
  - Crepitations [Unknown]
  - Diarrhoea [Unknown]
  - Vomiting [Unknown]
  - Asthma [Unknown]
  - Depression [Unknown]
  - Myalgia [Recovering/Resolving]
  - SARS-CoV-2 test positive [Recovering/Resolving]
  - Hypersomnia [Recovering/Resolving]
  - Cough [Recovering/Resolving]
  - Feeling hot [Recovering/Resolving]
  - Pyrexia [Recovering/Resolving]
  - Exposure to SARS-CoV-2 [Recovering/Resolving]
  - Illness [Recovering/Resolving]
  - Fatigue [Unknown]
  - Sleep apnoea syndrome [Unknown]
  - Condition aggravated [Unknown]

NARRATIVE: CASE EVENT DATE: 20231001
